FAERS Safety Report 9387951 (Version 1)
Quarter: 2013Q3

REPORT INFORMATION
  Report Type: Spontaneous
  Country: US (occurrence: US)
  Receive Date: 20130708
  Receipt Date: 20130708
  Transmission Date: 20140515
  Serious: Yes (Other)
  Sender: FDA-Public Use
  Company Number: US-BAYER-2013-080659

PATIENT
  Age: 24 Year
  Sex: Male
  Weight: 77.1 kg

DRUGS (1)
  1. ALEVE CAPLET [Suspect]
     Indication: HEADACHE
     Dosage: 2 DF, UNK
     Dates: start: 20130626, end: 20130626

REACTIONS (4)
  - VIIth nerve paralysis [Not Recovered/Not Resolved]
  - Eyelid function disorder [Not Recovered/Not Resolved]
  - Swelling face [Recovered/Resolved]
  - Dyskinesia [Not Recovered/Not Resolved]
